FAERS Safety Report 6424696-8 (Version None)
Quarter: 2009Q4

REPORT INFORMATION
  Report Type: 
  Country: None (occurrence: None)
  Receive Date: 20091103
  Receipt Date: 20090922
  Transmission Date: 20100525
  Serious: Yes (Other)
  Sender: FDA-Public Use
  Company Number: PHHY2009IT39792

PATIENT
  Sex: Male

DRUGS (6)
  1. ZOMETA [Suspect]
     Indication: METASTASES TO LUNG
     Dosage: 3 MG
     Route: 042
     Dates: start: 20080701, end: 20090531
  2. AVASTIN [Suspect]
     Indication: METASTASES TO LUNG
     Dosage: 7 MG/KG, UNK
     Dates: start: 20080701, end: 20090131
  3. AVASTIN [Suspect]
     Dosage: UNK
     Dates: end: 20090901
  4. TARCEVA [Suspect]
     Dosage: UNK
     Dates: start: 20090901
  5. GEMCITABINE [Concomitant]
     Dosage: 1.8 G
  6. CISPLATIN [Concomitant]
     Dosage: 1 G

REACTIONS (1)
  - OSTEONECROSIS [None]
